FAERS Safety Report 5185669-9 (Version None)
Quarter: 2006Q4

REPORT INFORMATION
  Report Type: 
  Country: None (occurrence: None)
  Receive Date: 20061220
  Receipt Date: 20060820
  Transmission Date: 20070319
  Serious: No
  Sender: FDA-Public Use
  Company Number: US-GLAXOSMITHKLINE-A0617650A

PATIENT
  Age: 28 Year
  Sex: Male

DRUGS (1)
  1. NICODERM CQ [Suspect]

REACTIONS (2)
  - APPLICATION SITE ANAESTHESIA [None]
  - COUGH [None]
